FAERS Safety Report 24421539 (Version 1)
Quarter: 2024Q4

REPORT INFORMATION
  Report Type: Other
  Country: GB (occurrence: GB)
  Receive Date: 20241010
  Receipt Date: 20241010
  Transmission Date: 20250115
  Serious: Yes (Hospitalization, Other)
  Sender: DEXCEL
  Company Number: GB-DEXPHARM-2024-3315

PATIENT
  Age: 61 Year
  Sex: Female

DRUGS (7)
  1. LANSOPRAZOLE [Suspect]
     Active Substance: LANSOPRAZOLE
  2. LACOSAMIDE [Suspect]
     Active Substance: LACOSAMIDE
  3. ACYCLOVIR [Concomitant]
     Active Substance: ACYCLOVIR
     Dosage: THIS WAS TREATED WITH ORAL ACICLOVIR
  4. ACYCLOVIR [Concomitant]
     Active Substance: ACYCLOVIR
     Dosage: THIS WAS TREATED WITH ORAL AND THEN INTRAVENOUS ACICLOVIR
  5. HYDROXYCHLOROQUINE [Suspect]
     Active Substance: HYDROXYCHLOROQUINE
     Dosage: HYDROXYCHLOROQUINE FOR 4 MONTHS AS MONOTHERAPY
  6. HYDROXYCHLOROQUINE [Suspect]
     Active Substance: HYDROXYCHLOROQUINE
     Dosage: COMBINATION ORAL HYDROXYCHLOROQUINE AND ACITRETIN
  7. ACITRETIN [Suspect]
     Active Substance: ACITRETIN
     Dosage: COMBINATION ORAL HYDROXYCHLOROQUINE AND ACITRETIN

REACTIONS (10)
  - Lichenoid keratosis [Not Recovered/Not Resolved]
  - Bronchopulmonary aspergillosis [Unknown]
  - Liver injury [Unknown]
  - Metabolic encephalopathy [Unknown]
  - Renal injury [Unknown]
  - Cytomegalovirus infection [Unknown]
  - Anaemia [Unknown]
  - Lymphopenia [Unknown]
  - Condition aggravated [Unknown]
  - Drug ineffective [Unknown]
